FAERS Safety Report 9193002 (Version 2)
Quarter: 2013Q3

REPORT INFORMATION
  Report Type: Report from Study
  Country: US (occurrence: US)
  Receive Date: 20130327
  Receipt Date: 20130702
  Transmission Date: 20140515
  Serious: Yes (Hospitalization)
  Sender: FDA-Public Use
  Company Number: US-VERTEX PHARMACEUTICALS INC.-2013-004120

PATIENT
  Age: 51 Year
  Sex: Male
  Weight: 131 kg

DRUGS (14)
  1. BLINDED PRE-TREATMENT [Suspect]
     Indication: CHRONIC HEPATITIS C
     Dosage: 750 MG, TID
     Route: 048
     Dates: start: 20121114, end: 20130205
  2. BLINDED TMC435 [Suspect]
     Indication: CHRONIC HEPATITIS C
     Dosage: 750 MG, TID
     Route: 048
     Dates: start: 20121114, end: 20130205
  3. BLINDED VX-950 (TELAPREVIR) [Suspect]
     Indication: CHRONIC HEPATITIS C
     Dosage: 750 MG, TID
     Route: 048
     Dates: start: 20121114, end: 20130205
  4. RIBAVIRIN [Suspect]
     Indication: CHRONIC HEPATITIS C
     Dosage: DOSAGE FORM: TABLET
     Route: 048
     Dates: start: 20121114, end: 20130307
  5. PEGINTERFERON ALFA-2A [Suspect]
     Indication: CHRONIC HEPATITIS C
     Dosage: DOSAGE FORM: INJECTION
     Route: 058
     Dates: start: 20121114, end: 20130307
  6. ATENOLOL-CHLORTHALIDONE [Concomitant]
     Indication: HYPERTENSION
     Dosage: UNK, QD
     Route: 048
  7. PAROXETINE [Concomitant]
     Indication: DEPRESSION
     Dosage: 10 MG, QD
     Route: 048
     Dates: start: 20121114
  8. EPIPEN [Concomitant]
     Indication: MULTIPLE ALLERGIES
     Dosage: 1 DF, PRN
     Route: 030
  9. PRILOSEC [Concomitant]
     Indication: GASTROOESOPHAGEAL REFLUX DISEASE
     Dosage: 20 MG, QD
     Route: 048
     Dates: start: 20121016
  10. CALAMINE [Concomitant]
     Dosage: 1 DF, PRN
     Route: 061
     Dates: start: 20121207
  11. PROCTOSOL [Concomitant]
     Dosage: 1 DF, QD
     Route: 054
     Dates: start: 20121207
  12. FAMOTIDINE [Concomitant]
     Indication: GASTROOESOPHAGEAL REFLUX DISEASE
     Dosage: 40 MG, QD
     Route: 048
     Dates: start: 20121226
  13. HYDROCORTISONE [Concomitant]
     Dosage: 1 DF, TID
     Route: 061
     Dates: start: 20121207
  14. RHINOCORT [Concomitant]
     Indication: NASAL CONGESTION
     Dosage: 1 DF, PRN
     Route: 055

REACTIONS (2)
  - Pulmonary embolism [Recovered/Resolved]
  - Deep vein thrombosis [Recovered/Resolved]
